FAERS Safety Report 7617114-5 (Version None)
Quarter: 2011Q3

REPORT INFORMATION
  Report Type: 
  Country: None (occurrence: None)
  Receive Date: 20110718
  Receipt Date: 20110706
  Transmission Date: 20111222
  Serious: Yes (Hospitalization)
  Sender: FDA-Public Use
  Company Number: US-UCBSA-036791

PATIENT
  Sex: Female

DRUGS (1)
  1. KEPPRA XR [Suspect]
     Dosage: 500 MG

REACTIONS (2)
  - FALL [None]
  - TREMOR [None]
